FAERS Safety Report 7267720-5 (Version None)
Quarter: 2011Q1

REPORT INFORMATION
  Report Type: 
  Country: None (occurrence: None)
  Receive Date: 20110201
  Receipt Date: 20110128
  Transmission Date: 20110831
  Serious: Yes (Other)
  Sender: FDA-Public Use
  Company Number: US-PFIZER INC-2011020868

PATIENT
  Sex: Female
  Weight: 43.991 kg

DRUGS (1)
  1. ADVIL [Suspect]
     Dosage: UNK

REACTIONS (1)
  - RASH [None]
